FAERS Safety Report 9555192 (Version 1)
Quarter: 2013Q3

REPORT INFORMATION
  Report Type: Spontaneous
  Country: US (occurrence: None)
  Receive Date: 20130815
  Receipt Date: 20130815
  Transmission Date: 20140515
  Serious: Yes (Hospitalization, Other)
  Sender: FDA-Public Use
  Company Number: ADR-2013-00954

PATIENT
  Age: 15 Year
  Sex: Male

DRUGS (1)
  1. BACLOFEN [Suspect]
     Dosage: 460 MCG/DAY/INTRATHECAL
     Route: 037

REACTIONS (3)
  - Hypertonia [None]
  - Muscle tightness [None]
  - No therapeutic response [None]
